FAERS Safety Report 6831858-4 (Version None)
Quarter: 2010Q3

REPORT INFORMATION
  Report Type: 
  Country: None (occurrence: None)
  Receive Date: 20100712
  Receipt Date: 20100702
  Transmission Date: 20110219
  Serious: Yes (Hospitalization, Other)
  Sender: FDA-Public Use
  Company Number: FR-PFIZER INC-2010062183

PATIENT
  Age: 55 Year
  Sex: Male
  Weight: 54 kg

DRUGS (5)
  1. TAHOR [Suspect]
     Indication: CEREBROVASCULAR ACCIDENT PROPHYLAXIS
     Dosage: 80 MG, 1X/DAY
     Route: 048
     Dates: start: 20100319, end: 20100512
  2. NEXIUM [Suspect]
     Indication: GASTROOESOPHAGEAL REFLUX DISEASE
     Dosage: 20 MG, 1X/DAY
     Route: 048
     Dates: start: 20100319, end: 20100512
  3. COVERSYL [Concomitant]
     Indication: HYPERTENSION
     Dosage: 4 MG, 1X/DAY
     Route: 048
     Dates: start: 20100319
  4. INDAPAMIDE [Concomitant]
     Indication: HYPERTENSION
     Dosage: 1.5 MG, 1X/DAY
     Route: 048
     Dates: start: 20100319
  5. IMOVANE [Concomitant]
     Indication: INSOMNIA
     Dosage: 7.5 MG, 1X/DAY
     Route: 048
     Dates: start: 20100319

REACTIONS (4)
  - CELL DEATH [None]
  - CHOLESTASIS [None]
  - MIXED LIVER INJURY [None]
  - PYREXIA [None]
